FAERS Safety Report 9921465 (Version 1)
Quarter: 2014Q1

REPORT INFORMATION
  Report Type: Spontaneous
  Country: US (occurrence: None)
  Receive Date: 20140221
  Receipt Date: 20140221
  Transmission Date: 20141002
  Serious: Yes (Life-Threatening)
  Sender: FDA-Public Use
  Company Number: None

PATIENT
  Age: 47 Year
  Sex: Male

DRUGS (2)
  1. VICTRELIS 200MG MERCK [Suspect]
     Indication: HEPATITIS C
     Route: 048
     Dates: start: 20140123, end: 20140215
  2. RIBASPHERE [Suspect]
     Indication: HEPATITIS C
     Route: 048
     Dates: start: 20140123, end: 20140215

REACTIONS (1)
  - Pyrexia [None]
